FAERS Safety Report 7545416-X (Version None)
Quarter: 2011Q2

REPORT INFORMATION
  Report Type: 
  Country: None (occurrence: None)
  Receive Date: 20110524
  Receipt Date: 20110210
  Transmission Date: 20111010
  Serious: No
  Sender: FDA-Public Use
  Company Number: 027261

PATIENT
  Sex: Female
  Weight: 49 kg

DRUGS (6)
  1. TRAZODONE HCL [Concomitant]
  2. CIMZIA [Suspect]
     Indication: CROHN'S DISEASE
     Dosage: (400 MG X/2 WEEKS SUBCUTANEOUS)
     Route: 058
     Dates: start: 20110125
  3. ZOLEDRONIC ACID [Concomitant]
  4. CYMBALTA [Concomitant]
  5. ARANESP [Concomitant]
  6. VITAMIN B12 NOS [Concomitant]

REACTIONS (2)
  - RECTAL HAEMORRHAGE [None]
  - DIARRHOEA [None]
